FAERS Safety Report 24603928 (Version 1)
Quarter: 2024Q4

REPORT INFORMATION
  Report Type: Spontaneous
  Country: JP (occurrence: JP)
  Receive Date: 20241111
  Receipt Date: 20241111
  Transmission Date: 20250114
  Serious: Yes (Death)
  Sender: IPSEN BIOPHARMACEUTICALS, INC.
  Company Number: JP-SERVIER-S24013398

PATIENT
  Age: 70 Year
  Sex: Male

DRUGS (4)
  1. ONIVYDE [Suspect]
     Active Substance: IRINOTECAN HYDROCHLORIDE
     Indication: Pancreatic carcinoma
     Dosage: 60 MG
     Route: 042
     Dates: start: 20230313, end: 20230313
  2. ONIVYDE [Suspect]
     Active Substance: IRINOTECAN HYDROCHLORIDE
     Dosage: 60 MG
     Route: 042
     Dates: start: 20230329, end: 20230329
  3. FLUOROURACIL [Concomitant]
     Active Substance: FLUOROURACIL
     Indication: Pancreatic carcinoma
     Dosage: 4080 MG
     Route: 042
     Dates: start: 20230313, end: 20230329
  4. LEVOLEUCOVORIN CALCIUM [Concomitant]
     Active Substance: LEVOLEUCOVORIN CALCIUM
     Indication: Pancreatic carcinoma
     Dosage: 340 MG
     Route: 042
     Dates: start: 20230313, end: 20230329

REACTIONS (3)
  - Death [Fatal]
  - Eastern Cooperative Oncology Group performance status worsened [Unknown]
  - Neutrophil count decreased [Recovered/Resolved]

NARRATIVE: CASE EVENT DATE: 20230101
